FAERS Safety Report 5735305-5 (Version None)
Quarter: 2008Q2

REPORT INFORMATION
  Report Type: 
  Country: None (occurrence: None)
  Receive Date: 20080512
  Receipt Date: 20080508
  Transmission Date: 20081010
  Serious: Yes (Other)
  Sender: FDA-Public Use
  Company Number: BR-BRISTOL-MYERS SQUIBB COMPANY-14090369

PATIENT
  Age: 37 Year
  Sex: Male

DRUGS (8)
  1. EFAVIRENZ [Suspect]
     Indication: HIV INFECTION
  2. ZIDOVUDINE [Suspect]
     Indication: HIV INFECTION
  3. LAMIVUDINE [Suspect]
     Indication: HIV INFECTION
  4. ETHAMBUTOL HYDROCHLORIDE [Concomitant]
     Indication: TUBERCULOSIS
  5. ISONIAZID [Concomitant]
     Indication: TUBERCULOSIS
  6. PYRAZINAMIDE [Concomitant]
     Indication: TUBERCULOSIS
  7. RIFABUTIN [Concomitant]
     Indication: TUBERCULOSIS
  8. RIFAMPIN [Concomitant]
     Indication: TUBERCULOSIS

REACTIONS (8)
  - BORDERLINE LEPROSY [None]
  - DISCOMFORT [None]
  - EYELID OEDEMA [None]
  - IMMUNE RECONSTITUTION SYNDROME [None]
  - MADAROSIS [None]
  - PARAESTHESIA [None]
  - SKIN LESION [None]
  - TUBERCULOID LEPROSY [None]
